FAERS Safety Report 7270642-7 (Version None)
Quarter: 2011Q1

REPORT INFORMATION
  Report Type: 
  Country: None (occurrence: None)
  Receive Date: 20110202
  Receipt Date: 20110126
  Transmission Date: 20110831
  Serious: Yes (Other)
  Sender: FDA-Public Use
  Company Number: A0909478A

PATIENT
  Age: 15 Year
  Sex: Female

DRUGS (3)
  1. LAMICTAL [Suspect]
     Indication: MYOCLONIC EPILEPSY
     Dosage: 400MG TWICE PER DAY
     Route: 048
     Dates: start: 20100201, end: 20110119
  2. KLONOPIN [Concomitant]
  3. LAMICTAL XR [Suspect]
     Indication: MYOCLONIC EPILEPSY
     Dosage: 400MG TWICE PER DAY
     Route: 048
     Dates: start: 20110119

REACTIONS (3)
  - OVERDOSE [None]
  - INAPPROPRIATE SCHEDULE OF DRUG ADMINISTRATION [None]
  - CONVULSION [None]
